FAERS Safety Report 6220174-X (Version None)
Quarter: 2009Q2

REPORT INFORMATION
  Report Type: 
  Country: None (occurrence: None)
  Receive Date: 20090605
  Receipt Date: 20090528
  Transmission Date: 20091009
  Serious: Yes (Hospitalization)
  Sender: FDA-Public Use
  Company Number: DE-1169711

PATIENT
  Sex: Female

DRUGS (1)
  1. FLUORESCITE [Suspect]
     Dosage: INTRAVENOUS BOLUS
     Route: 040

REACTIONS (1)
  - CEREBROVASCULAR ACCIDENT [None]
